FAERS Safety Report 4694311-2 (Version None)
Quarter: 2005Q2

REPORT INFORMATION
  Report Type: 
  Country: None (occurrence: None)
  Receive Date: 20050620
  Receipt Date: 20050608
  Transmission Date: 20051028
  Serious: Yes (Life-Threatening, Hospitalization)
  Sender: FDA-Public Use
  Company Number: CA-JNJFOC-20050404569

PATIENT
  Sex: Female
  Weight: 64.7 kg

DRUGS (9)
  1. REMICADE [Suspect]
     Route: 042
  2. REMICADE [Suspect]
     Indication: RHEUMATOID ARTHRITIS
     Route: 042
  3. CELEBREX [Concomitant]
     Indication: RHEUMATOID ARTHRITIS
     Dosage: 200 MG, DAILY AS NEEDED
     Route: 049
  4. TYLENOL [Concomitant]
     Indication: RHEUMATOID ARTHRITIS
     Route: 049
  5. MTX [Concomitant]
     Indication: RHEUMATOID ARTHRITIS
     Route: 058
  6. FOLIC ACID [Concomitant]
     Indication: RHEUMATOID ARTHRITIS
     Route: 049
  7. NEXIUM [Concomitant]
     Indication: DYSPEPSIA
     Route: 049
  8. FOSAMAX [Concomitant]
     Indication: OSTEOPENIA
     Route: 049
  9. LUMIGAN [Concomitant]
     Indication: GLAUCOMA

REACTIONS (2)
  - DIVERTICULAR PERFORATION [None]
  - PERITONITIS [None]
